FAERS Safety Report 5594405-3 (Version None)
Quarter: 2008Q1

REPORT INFORMATION
  Report Type: 
  Country: None (occurrence: None)
  Receive Date: 20080115
  Receipt Date: 20080115
  Transmission Date: 20080703
  Serious: Yes (Other)
  Sender: FDA-Public Use
  Company Number: None

PATIENT
  Sex: Male
  Weight: 10.6 kg

DRUGS (2)
  1. ADVATE [Suspect]
     Indication: PROPHYLAXIS
     Dosage: 1011 (IV) QD PORT
     Route: 042
     Dates: start: 20070813
  2. ADVATE [Suspect]
     Indication: PROPHYLAXIS
     Dosage: 1011 (IV) QD PORT
     Route: 042
     Dates: start: 20070813

REACTIONS (2)
  - ANTI FACTOR VIII ANTIBODY POSITIVE [None]
  - INHIBITING ANTIBODIES [None]
